FAERS Safety Report 9013466 (Version 1)
Quarter: 2012Q4

REPORT INFORMATION
  Report Type: Spontaneous
  Country: DE (occurrence: None)
  Receive Date: 20121231
  Receipt Date: 20121231
  Transmission Date: 20130627
  Serious: Yes (Death, Hospitalization)
  Sender: FDA-Public Use
  Company Number: AUR-APL-2012-05537

PATIENT
  Age: 79 Year
  Sex: Male

DRUGS (5)
  1. METFORMIN (METFORMIN) [Suspect]
     Indication: DIABETES MELLITUS
     Dosage: 2000 mg (100 mg, 2 in 1 D), oral
     Route: 048
  2. ALLOPURINOL (ALLOPURINOL) [Concomitant]
  3. PHENPROCOUMON (PHENPROCOUMON) [Concomitant]
  4. RAMIPRIL (RAMIPRIL) [Concomitant]
  5. VALPROAT (VALPROATE SODIUM) [Concomitant]

REACTIONS (2)
  - Renal failure acute [None]
  - Lactic acidosis [None]
